FAERS Safety Report 16750543 (Version 6)
Quarter: 2021Q2

REPORT INFORMATION
  Report Type: Spontaneous
  Country: US (occurrence: US)
  Receive Date: 20190828
  Receipt Date: 20210526
  Transmission Date: 20210716
  Serious: No
  Sender: FDA-Public Use
  Company Number: US-PFIZER INC-2019369355

PATIENT
  Age: 78 Year
  Sex: Male

DRUGS (1)
  1. LYRICA [Suspect]
     Active Substance: PREGABALIN
     Dosage: 50 MG, 4X/DAY (SIG: 1 PO QID)/ (LYRICA 50 MG (4 X DAY))
     Route: 048

REACTIONS (2)
  - Hypoacusis [Unknown]
  - Drug hypersensitivity [Unknown]
